FAERS Safety Report 5369687-3 (Version None)
Quarter: 2007Q2

REPORT INFORMATION
  Report Type: 
  Country: None (occurrence: None)
  Receive Date: 20070621
  Receipt Date: 20070608
  Transmission Date: 20071010
  Serious: Yes (Death)
  Sender: FDA-Public Use
  Company Number: CERZ-11744

PATIENT
  Sex: Female
  Weight: 58 kg

DRUGS (2)
  1. CEREZYME [Suspect]
     Indication: GAUCHER'S DISEASE
     Dosage: 3600 UNTIS Q2WKS IV
     Route: 042
  2. CEREZYME [Suspect]
     Indication: GAUCHER'S DISEASE
     Dosage: 3600 UNITS Q2WKS IV
     Route: 042
     Dates: start: 19970929, end: 20020619

REACTIONS (9)
  - CORONARY ARTERY DISEASE [None]
  - DEVICE MIGRATION [None]
  - DISEASE RECURRENCE [None]
  - DISLOCATION OF JOINT PROSTHESIS [None]
  - FEMUR FRACTURE [None]
  - INFECTION [None]
  - MYOCARDIAL INFARCTION [None]
  - SEPSIS [None]
  - THROMBOCYTOPENIA [None]
